FAERS Safety Report 14180038 (Version 1)
Quarter: 2017Q4

REPORT INFORMATION
  Report Type: Spontaneous
  Country: BG (occurrence: BG)
  Receive Date: 20171110
  Receipt Date: 20171110
  Transmission Date: 20180321
  Serious: Yes (Disabling)
  Sender: FDA-Public Use
  Company Number: BG-009507513-1711BGR000298

PATIENT
  Age: 84 Year
  Sex: Female

DRUGS (4)
  1. HYDROCHLOROTHIAZIDE (+) VALSARTAN [Concomitant]
     Active Substance: HYDROCHLOROTHIAZIDE\VALSARTAN
     Dosage: STRENGTH: 160G/12.5
  2. ZEPATIER [Suspect]
     Active Substance: ELBASVIR\GRAZOPREVIR
     Indication: CHRONIC HEPATITIS C
     Dosage: STRENGTH: 50MG/100MG
     Route: 048
     Dates: start: 201707, end: 201710
  3. PREDUCTAL [Concomitant]
     Active Substance: TRIMETAZIDINE DIHYDROCHLORIDE
  4. BISOGAMMA [Concomitant]
     Active Substance: BISOPROLOL FUMARATE
     Dosage: UNK MG, UNK

REACTIONS (4)
  - Pruritus [Unknown]
  - Muscular weakness [Recovering/Resolving]
  - Drug ineffective [Unknown]
  - Gait inability [Recovering/Resolving]

NARRATIVE: CASE EVENT DATE: 2017
